FAERS Safety Report 11490015 (Version 1)
Quarter: 2015Q3

REPORT INFORMATION
  Report Type: Report from Study
  Country: RO (occurrence: RO)
  Receive Date: 20150910
  Receipt Date: 20150910
  Transmission Date: 20151125
  Serious: Yes (Other)
  Sender: FDA-Public Use
  Company Number: RO-ABBVIE-15P-135-1457571-00

PATIENT
  Age: 50 Year
  Sex: Male

DRUGS (1)
  1. DUODOPA [Suspect]
     Active Substance: CARBIDOPA\LEVODOPA
     Indication: PARKINSON^S DISEASE
     Dosage: MD - 7 ML, CR - 5.8 ML/H, ED - 3.3 ML, 24/24 H
     Route: 050
     Dates: start: 20130115

REACTIONS (8)
  - Bronchial neoplasm [Unknown]
  - Night sweats [Recovering/Resolving]
  - Lung neoplasm [Unknown]
  - Productive cough [Recovering/Resolving]
  - Body temperature abnormal [Recovering/Resolving]
  - Sputum purulent [Recovering/Resolving]
  - Fatigue [Recovering/Resolving]
  - Chest pain [Recovering/Resolving]

NARRATIVE: CASE EVENT DATE: 201303
